FAERS Safety Report 7974625-0 (Version None)
Quarter: 2011Q4

REPORT INFORMATION
  Report Type: 
  Country: None (occurrence: None)
  Receive Date: 20111213
  Receipt Date: 20111206
  Transmission Date: 20120403
  Serious: Yes (Hospitalization, Other)
  Sender: FDA-Public Use
  Company Number: US-ACTELION-A-US2011-58120

PATIENT

DRUGS (1)
  1. TRACLEER [Suspect]
     Indication: PULMONARY ARTERIAL HYPERTENSION
     Dosage: UNK MG, UNK
     Route: 048
     Dates: start: 20111007

REACTIONS (5)
  - URINARY INCONTINENCE [None]
  - RESPIRATORY DISTRESS [None]
  - DEHYDRATION [None]
  - HYPOGLYCAEMIA [None]
  - SYNCOPE [None]
